FAERS Safety Report 7051149-9 (Version None)
Quarter: 2010Q4

REPORT INFORMATION
  Report Type: 
  Country: None (occurrence: None)
  Receive Date: 20101019
  Receipt Date: 20101008
  Transmission Date: 20110411
  Serious: Yes (Hospitalization)
  Sender: FDA-Public Use
  Company Number: US-PERRIGO-10US013777

PATIENT
  Age: 59 Year
  Sex: Female

DRUGS (6)
  1. CIMETIDINE  200 MG 022 [Suspect]
     Indication: GASTROOESOPHAGEAL REFLUX DISEASE
     Dosage: UNK
     Route: 048
  2. METFORMIN [Suspect]
     Indication: TYPE 2 DIABETES MELLITUS
     Dosage: UNK
     Route: 048
  3. FENOFIBRATE [Concomitant]
     Dosage: UNK
     Route: 048
  4. LISINOPRIL [Concomitant]
     Dosage: UNK
     Route: 048
  5. FLUVASTATIN [Concomitant]
     Dosage: UNK
     Route: 048
  6. ATENOLOL [Concomitant]
     Dosage: UNK
     Route: 048

REACTIONS (8)
  - DIARRHOEA [None]
  - DRUG INTERACTION [None]
  - FOOD INTOLERANCE [None]
  - LACTIC ACIDOSIS [None]
  - NAUSEA [None]
  - PANCREATITIS [None]
  - RENAL FAILURE ACUTE [None]
  - VOMITING [None]
